FAERS Safety Report 10664183 (Version 3)
Quarter: 2016Q3

REPORT INFORMATION
  Report Type: Spontaneous
  Country: US (occurrence: US)
  Receive Date: 20141219
  Receipt Date: 20160921
  Transmission Date: 20161109
  Serious: Yes (Hospitalization, Other)
  Sender: FDA-Public Use
  Company Number: US-JNJFOC-20141212046

PATIENT
  Sex: Male

DRUGS (3)
  1. RISPERDAL [Suspect]
     Active Substance: RISPERIDONE
     Indication: EPILEPSY
     Route: 048
     Dates: start: 2001, end: 2016
  2. RISPERIDONE. [Suspect]
     Active Substance: RISPERIDONE
     Indication: PRODUCT USED FOR UNKNOWN INDICATION
     Route: 065
  3. RISPERDAL [Suspect]
     Active Substance: RISPERIDONE
     Indication: TIC
     Route: 048
     Dates: start: 2001, end: 2016

REACTIONS (14)
  - Diabetes mellitus [Unknown]
  - Gynaecomastia [Unknown]
  - Emotional disorder [Unknown]
  - Product use issue [Unknown]
  - Enuresis [Unknown]
  - Dyssomnia [Unknown]
  - Suicidal ideation [Not Recovered/Not Resolved]
  - Anxiety [Unknown]
  - Motor dysfunction [Unknown]
  - Abnormal behaviour [Unknown]
  - Aggression [Unknown]
  - Delayed puberty [Unknown]
  - Neck mass [Unknown]
  - Weight increased [Unknown]

NARRATIVE: CASE EVENT DATE: 2003
